FAERS Safety Report 17643731 (Version 1)
Quarter: 2020Q2

REPORT INFORMATION
  Report Type: Spontaneous
  Country: US (occurrence: US)
  Receive Date: 20200407
  Receipt Date: 20200407
  Transmission Date: 20200713
  Serious: Yes (Death)
  Sender: FDA-Public Use
  Company Number: None

PATIENT
  Age: 63 Year
  Sex: Male

DRUGS (3)
  1. ELIQUIS [Concomitant]
     Active Substance: APIXABAN
  2. AMANTADINE. [Concomitant]
     Active Substance: AMANTADINE HYDROCHLORIDE
  3. SILDENAFIL 20MG [Suspect]
     Active Substance: SILDENAFIL
     Route: 048
     Dates: start: 20190722, end: 20200401

REACTIONS (1)
  - Death [None]

NARRATIVE: CASE EVENT DATE: 20200401
